FAERS Safety Report 21488507 (Version 1)
Quarter: 2022Q4

REPORT INFORMATION
  Report Type: Spontaneous
  Country: US (occurrence: US)
  Receive Date: 20221021
  Receipt Date: 20221021
  Transmission Date: 20230113
  Serious: No
  Sender: FDA-Public Use
  Company Number: US-CELLTRION INC.-2022US005225

PATIENT

DRUGS (1)
  1. INFLECTRA [Suspect]
     Active Substance: INFLIXIMAB-DYYB
     Indication: Product used for unknown indication
     Dosage: 220 MILLIGRAM EVERY 0, 2, 6 THEN Q 8 WEEKS
     Route: 042
     Dates: start: 20220520, end: 20220701

REACTIONS (2)
  - Pain [Unknown]
  - Swelling [Unknown]
